FAERS Safety Report 9476779 (Version 3)
Quarter: 2013Q4

REPORT INFORMATION
  Report Type: Report from Study
  Country: US (occurrence: US)
  Receive Date: 20130826
  Receipt Date: 20131217
  Transmission Date: 20140711
  Serious: Yes (Other)
  Sender: FDA-Public Use
  Company Number: PHEH2013US017969

PATIENT
  Age: 57 Year
  Sex: Female

DRUGS (9)
  1. GILENYA [Suspect]
     Indication: MULTIPLE SCLEROSIS
     Dosage: 0.5 MG, QD
     Route: 048
     Dates: start: 20110330, end: 20130820
  2. ASPIRIN [Concomitant]
     Dosage: 81 MG, DAILY
     Route: 048
  3. LOTENSIN [Concomitant]
     Indication: HYPERTENSION
     Dosage: 1 DF, BID
     Route: 048
     Dates: start: 20130611
  4. AMPYRA [Concomitant]
     Dosage: 10 MG, UNK
  5. HYDRODIURIL [Concomitant]
     Dosage: 1 DF, DAILY
     Route: 048
     Dates: start: 20130320
  6. SPORANOX [Concomitant]
     Dosage: 1 DF, (1 DF TID FOR 3 DAYS AND THEN I DF DAILY)
     Route: 048
     Dates: start: 20130822
  7. NASONEX [Concomitant]
     Dosage: 2 NASAL SPRAYS IN TO EACH NOSTRILS DAILY
     Route: 045
     Dates: start: 20130611
  8. ZOCOR [Concomitant]
     Dosage: 1 DF, UNK
     Route: 048
     Dates: start: 20130813
  9. FORTEO [Concomitant]
     Dosage: 1 DF, (INJECT 20 MCG IN TO THE SKIN DAILY)

REACTIONS (18)
  - Histoplasmosis [Recovering/Resolving]
  - Lung infiltration [Unknown]
  - Pyrexia [Unknown]
  - Night sweats [Unknown]
  - Chills [Unknown]
  - Wheezing [Recovering/Resolving]
  - Dyspnoea [Recovering/Resolving]
  - Cough [Recovering/Resolving]
  - Pain [Unknown]
  - Cerebral ischaemia [Unknown]
  - Neuritis [Unknown]
  - Mean cell volume decreased [Unknown]
  - Mean cell haemoglobin decreased [Unknown]
  - Red cell distribution width increased [Unknown]
  - Uhthoff^s phenomenon [Unknown]
  - Hypoaesthesia [Unknown]
  - Gait disturbance [Unknown]
  - Headache [Unknown]
